FAERS Safety Report 5475122-7 (Version None)
Quarter: 2007Q4

REPORT INFORMATION
  Report Type: 
  Country: None (occurrence: None)
  Receive Date: 20071002
  Receipt Date: 20070928
  Transmission Date: 20080405
  Serious: Yes (Death)
  Sender: FDA-Public Use
  Company Number: DE-BOEHRINGER INGELHEIM PHARMACEUTICALS, INC.-2007-DE-05814DE

PATIENT
  Sex: Female
  Weight: 70 kg

DRUGS (5)
  1. SIFROL [Suspect]
     Indication: RESTLESS LEGS SYNDROME
     Route: 048
     Dates: start: 20070519
  2. SIFROL [Suspect]
     Route: 048
     Dates: start: 20070602, end: 20070629
  3. CARDIAKA [Concomitant]
     Indication: CARDIOVASCULAR DISORDER
  4. ANTI-DIABETICS [Concomitant]
     Indication: DIABETES MELLITUS
  5. ANTIDEPRESSANTS [Concomitant]
     Indication: DEPRESSION

REACTIONS (1)
  - CARDIAC FAILURE [None]
